FAERS Safety Report 20651172 (Version 9)
Quarter: 2023Q2

REPORT INFORMATION
  Report Type: Spontaneous
  Country: US (occurrence: US)
  Receive Date: 20220329
  Receipt Date: 20230503
  Transmission Date: 20230721
  Serious: Yes (Other)
  Sender: FDA-Public Use
  Company Number: US-BoehringerIngelheim-2022-BI-162068

PATIENT
  Age: 67 Year
  Sex: Male

DRUGS (2)
  1. JARDIANCE [Suspect]
     Active Substance: EMPAGLIFLOZIN
     Indication: Type 2 diabetes mellitus
     Route: 048
     Dates: start: 20230405
  2. JARDIANCE [Suspect]
     Active Substance: EMPAGLIFLOZIN
     Indication: Hyperglycaemia

REACTIONS (13)
  - Myocardial infarction [Recovering/Resolving]
  - Myocardial injury [Unknown]
  - Cerebrovascular accident [Unknown]
  - Road traffic accident [Unknown]
  - Upper limb fracture [Unknown]
  - Joint dislocation [Unknown]
  - Post-traumatic neck syndrome [Unknown]
  - Back injury [Unknown]
  - Joint injury [Unknown]
  - Insomnia [Unknown]
  - Hypertension [Unknown]
  - Heart rate increased [Unknown]
  - Intentional product misuse [Unknown]

NARRATIVE: CASE EVENT DATE: 20220101
